FAERS Safety Report 4619063-3 (Version None)
Quarter: 2005Q2

REPORT INFORMATION
  Report Type: 
  Country: None (occurrence: None)
  Receive Date: 20050321
  Receipt Date: 20041201
  Transmission Date: 20051028
  Serious: Yes (Hospitalization)
  Sender: FDA-Public Use
  Company Number: 2004-12-0074

PATIENT
  Age: 54 Year
  Sex: Female

DRUGS (1)
  1. PEG-INTRON [Suspect]
     Dosage: 150 MCG

REACTIONS (1)
  - PANCREATITIS [None]
